FAERS Safety Report 24331978 (Version 4)
Quarter: 2024Q4

REPORT INFORMATION
  Report Type: Spontaneous
  Country: HK (occurrence: HK)
  Receive Date: 20240918
  Receipt Date: 20241120
  Transmission Date: 20250114
  Serious: Yes (Other)
  Sender: ALEXION PHARMACEUTICALS
  Company Number: 2024A213051

PATIENT
  Age: 84 Year

DRUGS (12)
  1. DURVALUMAB [Suspect]
     Active Substance: DURVALUMAB
     Dosage: 15 MG/ KG
  2. DURVALUMAB [Suspect]
     Active Substance: DURVALUMAB
     Dosage: 15 MG/ KG
  3. DURVALUMAB [Suspect]
     Active Substance: DURVALUMAB
     Dosage: 15 MG/ KG
  4. DURVALUMAB [Suspect]
     Active Substance: DURVALUMAB
     Dosage: 15 MG/ KG
  5. OSIMERTINIB [Suspect]
     Active Substance: OSIMERTINIB
  6. OSIMERTINIB [Suspect]
     Active Substance: OSIMERTINIB
  7. OSIMERTINIB [Suspect]
     Active Substance: OSIMERTINIB
  8. OSIMERTINIB [Suspect]
     Active Substance: OSIMERTINIB
  9. ETOPOSIDE [Suspect]
     Active Substance: ETOPOSIDE
     Indication: Lung adenocarcinoma
     Dosage: UNK UNK, Q3W
  10. ETOPOSIDE [Suspect]
     Active Substance: ETOPOSIDE
     Dosage: UNK UNK, Q3W
     Route: 065
  11. CARBOPLATIN [Suspect]
     Active Substance: CARBOPLATIN
     Indication: Lung adenocarcinoma
     Dosage: UNK UNK, Q3W
  12. CARBOPLATIN [Suspect]
     Active Substance: CARBOPLATIN
     Dosage: UNK UNK, Q3W
     Route: 065

REACTIONS (4)
  - Malignant transformation [Unknown]
  - Malignant neoplasm progression [Unknown]
  - Drug resistance [Unknown]
  - Weight decreased [Unknown]
